FAERS Safety Report 5719715-8 (Version None)
Quarter: 2008Q2

REPORT INFORMATION
  Report Type: 
  Country: None (occurrence: None)
  Receive Date: 20080425
  Receipt Date: 20080425
  Transmission Date: 20081010
  Serious: Yes (Hospitalization)
  Sender: FDA-Public Use
  Company Number: None

PATIENT
  Age: 84 Year
  Sex: Male

DRUGS (1)
  1. NAPROXEN [Suspect]
     Indication: PAIN
     Dosage: 250 MG BID PO
     Route: 048
     Dates: start: 20071203, end: 20080417

REACTIONS (3)
  - GASTRIC HAEMORRHAGE [None]
  - NAUSEA [None]
  - VOMITING [None]
